FAERS Safety Report 24686655 (Version 1)
Quarter: 2024Q4

REPORT INFORMATION
  Report Type: Spontaneous
  Country: IN (occurrence: IN)
  Receive Date: 20241202
  Receipt Date: 20241202
  Transmission Date: 20250115
  Serious: Yes (Other)
  Sender: MERCK
  Company Number: IN-009507513-2411IND011633

PATIENT
  Age: 59 Year
  Sex: Male

DRUGS (2)
  1. CASPOFUNGIN ACETATE [Suspect]
     Active Substance: CASPOFUNGIN ACETATE
     Indication: Endocarditis candida
     Dosage: UNK, ONCE DAILY
  2. AMPHOTERICIN B [Suspect]
     Active Substance: AMPHOTERICIN B
     Indication: Endocarditis candida
     Dosage: 5 MILLIGRAM/KILOGRAM, INTRAVENOUS LIPOSOMAL

REACTIONS (1)
  - Drug ineffective [Unknown]
